FAERS Safety Report 20975800 (Version 4)
Quarter: 2025Q2

REPORT INFORMATION
  Report Type: Spontaneous
  Country: ES (occurrence: ES)
  Receive Date: 20220617
  Receipt Date: 20250428
  Transmission Date: 20250716
  Serious: Yes (Hospitalization, Other)
  Sender: PFIZER
  Company Number: ES-SA-2022SA206139

PATIENT
  Age: 65 Year
  Sex: Male
  Weight: 63.1 kg

DRUGS (15)
  1. OXALIPLATIN [Suspect]
     Active Substance: OXALIPLATIN
     Indication: Pancreatic carcinoma
     Route: 042
     Dates: start: 20220425, end: 20220509
  2. IRINOTECAN HYDROCHLORIDE [Suspect]
     Active Substance: IRINOTECAN HYDROCHLORIDE
     Route: 042
     Dates: start: 20220425, end: 20220509
  3. FLUOROURACIL SODIUM [Suspect]
     Active Substance: FLUOROURACIL SODIUM
     Indication: Pancreatic carcinoma
     Route: 042
     Dates: start: 20220425, end: 20220509
  4. ABBV-151 [Suspect]
     Active Substance: ABBV-151
     Indication: Pancreatic carcinoma
     Route: 041
     Dates: start: 20220427
  5. BUDIGALIMAB [Suspect]
     Active Substance: BUDIGALIMAB
     Indication: Pancreatic carcinoma
     Dates: start: 20220427, end: 20220427
  6. LEUCOVORIN [Suspect]
     Active Substance: LEUCOVORIN\LEUCOVORIN CALCIUM
     Indication: Pancreatic carcinoma
     Route: 042
     Dates: start: 20220425
  7. GILORALIMAB [Suspect]
     Active Substance: GILORALIMAB
     Indication: Pancreatic carcinoma
     Route: 042
     Dates: start: 20220427, end: 20220427
  8. METOCLOPRAMIDE HYDROCHLORIDE [Suspect]
     Active Substance: METOCLOPRAMIDE HYDROCHLORIDE
  9. OMEPRAZOLE [Concomitant]
     Active Substance: OMEPRAZOLE
     Indication: Gastrointestinal disorder
     Dosage: 40 MG, 1X/DAY (QD)
     Dates: start: 20220420
  10. PANCRELIPASE [Concomitant]
     Active Substance: PANCRELIPASE
     Indication: Pancreatic failure
     Dosage: 2500 IU, 4X/DAY (EVERY 6 HOUR)
     Route: 048
     Dates: start: 20220420
  11. VITAMIN D COMPACT [Concomitant]
     Indication: Osteoporosis
     Dosage: 1 DF, 1X/DAY (QD)
     Route: 048
     Dates: start: 20220420
  12. METFORMIN [Concomitant]
     Active Substance: METFORMIN HYDROCHLORIDE
     Indication: Diabetes mellitus
     Dosage: 1700 MG, 2X/DAY (BID EVERY 12 HOURS)
     Route: 048
     Dates: start: 20220420
  13. ATORVASTATIN [Concomitant]
     Active Substance: ATORVASTATIN
     Indication: Dyslipidaemia
     Dosage: 20 MG, 1X/DAY (QD)
     Dates: start: 20220422
  14. FERROUS SULFATE [Concomitant]
     Active Substance: FERROUS SULFATE
     Indication: Anaemia
     Dosage: 1 DF, 1X/DAY (QD)
     Route: 048
     Dates: start: 20220422
  15. LANTUS [Concomitant]
     Active Substance: INSULIN GLARGINE
     Indication: Diabetes mellitus
     Dosage: 14 IU, 1X/DAY (QD)
     Route: 058
     Dates: start: 20220420

REACTIONS (6)
  - Diarrhoea [Recovered/Resolved]
  - Mucosal inflammation [Recovered/Resolved]
  - Hypokalaemia [Recovered/Resolved]
  - Febrile neutropenia [Recovered/Resolved]
  - Bacterial test positive [Unknown]
  - Off label use [Unknown]

NARRATIVE: CASE EVENT DATE: 20220425
